FAERS Safety Report 16094519 (Version 1)
Quarter: 2019Q2

REPORT INFORMATION
  Report Type: Spontaneous
  Country: US (occurrence: US)
  Receive Date: 20190319
  Receipt Date: 20190319
  Transmission Date: 20190711
  Serious: Yes (Hospitalization)
  Sender: FDA-Public Use
  Company Number: None

PATIENT
  Age: 47 Year
  Sex: Male

DRUGS (20)
  1. MAGNESIUM 400 MG [Concomitant]
  2. METOCLOPRAMIDE 10 MG [Concomitant]
     Active Substance: METOCLOPRAMIDE
  3. ORENCIA [Suspect]
     Active Substance: ABATACEPT
     Indication: RHEUMATOID ARTHRITIS
     Dosage: ?          OTHER FREQUENCY:EVERY 7 DAYS;?
     Route: 058
     Dates: start: 20190205, end: 20190305
  4. ASPRIN 81 MG [Concomitant]
  5. BUSPIRONE 5 MG [Concomitant]
  6. CARVEDILOL 6.25 MG [Concomitant]
     Active Substance: CARVEDILOL
  7. HUMALOG U-100 [Concomitant]
  8. TIZANIDINE 4 MG [Concomitant]
     Active Substance: TIZANIDINE
  9. CLONODINE 0.2 MG [Concomitant]
  10. LANTUS U - 100 [Concomitant]
  11. DILTIAZEM CD 240 MG [Concomitant]
  12. HYDRALAZINE 50 MG [Concomitant]
  13. METFORMIN 1,000 MG [Concomitant]
  14. MORPHINE ER 60 MG [Concomitant]
  15. OMEGA 3 [Concomitant]
     Active Substance: OMEGA-3 FATTY ACIDS
  16. PLAVIX [Concomitant]
     Active Substance: CLOPIDOGREL BISULFATE
  17. PREDNISONE 20 MG [Concomitant]
     Active Substance: PREDNISONE
  18. ELIQUIS [Concomitant]
     Active Substance: APIXABAN
  19. PRAVASTATIN 80 MG [Concomitant]
  20. OXYMORPHONE10 MG [Concomitant]

REACTIONS (1)
  - Hypoglycaemia [None]

NARRATIVE: CASE EVENT DATE: 20190308
